FAERS Safety Report 14758940 (Version 1)
Quarter: 2018Q2

REPORT INFORMATION
  Report Type: Spontaneous
  Country: PL (occurrence: PL)
  Receive Date: 20180413
  Receipt Date: 20180413
  Transmission Date: 20180711
  Serious: Yes (Hospitalization, Other)
  Sender: FDA-Public Use
  Company Number: PL-MYLANLABS-2018M1022792

PATIENT
  Age: 59 Year
  Sex: Male

DRUGS (9)
  1. RITONAVIR. [Suspect]
     Active Substance: RITONAVIR
     Indication: CHRONIC HEPATITIS C
     Dosage: MEDICATION TAKEN FROM 4 WEEKS BEFORE ADMISSION TO THE HOSPITAL
     Route: 065
  2. ACETYLSALICYLIC ACID [Suspect]
     Active Substance: ASPIRIN
     Indication: PRODUCT USED FOR UNKNOWN INDICATION
     Dosage: TAKEN MORE THAN YEAR
     Route: 065
  3. DASABUVIR [Suspect]
     Active Substance: DASABUVIR
     Indication: CHRONIC HEPATITIS C
     Dosage: MEDICATION TAKEN FROM 4 WEEKS BEFORE ADMISSION TO THE HOSPITAL
     Route: 065
  4. ZOFENOPRIL [Suspect]
     Active Substance: ZOFENOPRIL
     Indication: PRODUCT USED FOR UNKNOWN INDICATION
     Dosage: TAKEN MORE THAN YEAR
     Route: 065
  5. METOPROLOL. [Suspect]
     Active Substance: METOPROLOL
     Indication: PRODUCT USED FOR UNKNOWN INDICATION
     Dosage: TAKEN MORE THAN YEAR
     Route: 065
  6. LERCANIDIPINE [Interacting]
     Active Substance: LERCANIDIPINE
     Indication: HYPERTENSION
     Dosage: MEDICATION TAKEN FROM 3 WEEKS BEFORE ADMISSION TO THE HOSPITAL
  7. ATORVASTATIN [Interacting]
     Active Substance: ATORVASTATIN
     Indication: PRODUCT USED FOR UNKNOWN INDICATION
     Dosage: MEDICATION TAKEN FROM 3 WEEKS BEFORE ADMISSION TO THE HOSPITAL
  8. PARITAPREVIR [Suspect]
     Active Substance: PARITAPREVIR
     Indication: CHRONIC HEPATITIS C
     Dosage: MEDICATION TAKEN FROM 4 WEEKS BEFORE ADMISSION TO THE HOSPITAL
     Route: 065
  9. OMBITASVIR [Suspect]
     Active Substance: OMBITASVIR
     Indication: CHRONIC HEPATITIS C
     Dosage: MEDICATION TAKEN FROM 4 WEEKS BEFORE ADMISSION TO THE HOSPITAL
     Route: 065

REACTIONS (3)
  - Hepatotoxicity [Recovering/Resolving]
  - Alanine aminotransferase increased [Recovered/Resolved]
  - Drug interaction [Recovered/Resolved]
